FAERS Safety Report 15348450 (Version 2)
Quarter: 2018Q3

REPORT INFORMATION
  Report Type: Spontaneous
  Country: TH (occurrence: TH)
  Receive Date: 20180904
  Receipt Date: 20180925
  Transmission Date: 20181010
  Serious: Yes (Death)
  Sender: FDA-Public Use
  Company Number: TH-PFIZER INC-2018345268

PATIENT

DRUGS (3)
  1. POTASSIUM PHOSPHATES [Concomitant]
     Active Substance: POTASSIUM PHOSPHATE, DIBASIC\POTASSIUM PHOSPHATE, MONOBASIC
     Dosage: 60MEQ IN NSS 1000ML IV DRIP 80ML/H
     Route: 041
  2. CALCIUM GLUCONATE. [Concomitant]
     Active Substance: CALCIUM GLUCONATE
     Dosage: 20ML IN NSS 100ML IV DRIP IN 2HR
     Route: 041
  3. VFEND [Suspect]
     Active Substance: VORICONAZOLE
     Indication: SEPSIS
     Dosage: UNK
     Route: 042
     Dates: start: 20180823

REACTIONS (5)
  - Sepsis [Fatal]
  - Contraindicated product administered [Unknown]
  - Poor quality drug administered [Unknown]
  - Product solubility abnormal [Recovered/Resolved]
  - Multiple use of single-use product [Unknown]
